FAERS Safety Report 6151019-4 (Version None)
Quarter: 2009Q2

REPORT INFORMATION
  Report Type: 
  Country: None (occurrence: None)
  Receive Date: 20090410
  Receipt Date: 20090227
  Transmission Date: 20091009
  Serious: No
  Sender: FDA-Public Use
  Company Number: A0770699A

PATIENT
  Age: 49 Year
  Sex: Female

DRUGS (4)
  1. TYKERB [Suspect]
     Dosage: 3CAP PER DAY
     Route: 048
     Dates: start: 20090216
  2. LOMOTIL [Concomitant]
  3. HERCEPTIN [Concomitant]
     Route: 042
  4. ZOMETA [Concomitant]
     Route: 042

REACTIONS (2)
  - ABDOMINAL PAIN [None]
  - DIARRHOEA [None]
